FAERS Safety Report 16726554 (Version 1)
Quarter: 2019Q3

REPORT INFORMATION
  Report Type: Spontaneous
  Country: US (occurrence: US)
  Receive Date: 20190821
  Receipt Date: 20190821
  Transmission Date: 20191005
  Serious: Yes (Death)
  Sender: FDA-Public Use
  Company Number: US-TEVA-2019-US-1094794

PATIENT
  Sex: Female

DRUGS (2)
  1. FENTANYL (FENTANYL) [Suspect]
     Active Substance: FENTANYL
     Indication: HEADACHE
     Route: 062
  2. FENTANYL (FENTANYL) [Suspect]
     Active Substance: FENTANYL
     Indication: HEADACHE
     Route: 062

REACTIONS (2)
  - Accidental poisoning [Fatal]
  - Product use in unapproved indication [Unknown]

NARRATIVE: CASE EVENT DATE: 20170813
